FAERS Safety Report 9063253 (Version 1)
Quarter: 2013Q1

REPORT INFORMATION
  Report Type: Spontaneous
  Country: JP (occurrence: JP)
  Receive Date: 20130213
  Receipt Date: 20130213
  Transmission Date: 20140127
  Serious: Yes (Hospitalization)
  Sender: FDA-Public Use
  Company Number: JP-GLAXOSMITHKLINE-B0866265A

PATIENT
  Age: 80 Year
  Sex: Male
  Weight: 53 kg

DRUGS (10)
  1. VALTREX [Suspect]
     Indication: HERPES ZOSTER
     Dosage: 1000MG THREE TIMES PER DAY
     Route: 048
     Dates: start: 20121228, end: 20130103
  2. LOXONIN [Concomitant]
     Route: 065
     Dates: start: 20121228
  3. FLIVAS [Concomitant]
     Dosage: 25MG TWICE PER DAY
     Route: 048
  4. URSO [Concomitant]
     Dosage: 200MG THREE TIMES PER DAY
     Route: 048
  5. AMLODIN [Concomitant]
     Dosage: 5MG PER DAY
     Route: 048
  6. METGLUCO [Concomitant]
     Dosage: 250MG THREE TIMES PER DAY
     Route: 048
  7. BASEN [Concomitant]
     Dosage: .2MG THREE TIMES PER DAY
     Route: 048
  8. JANUVIA [Concomitant]
     Dosage: 50MG PER DAY
     Route: 048
  9. MAGMITT [Concomitant]
     Dosage: 500MG THREE TIMES PER DAY
     Route: 048
  10. TAKEPRON [Concomitant]
     Dosage: 30MG PER DAY
     Route: 048

REACTIONS (6)
  - Delirium [Recovered/Resolved]
  - Renal failure acute [Recovered/Resolved]
  - Tachycardia [Recovered/Resolved]
  - Drug eruption [Recovered/Resolved]
  - Asthenia [Unknown]
  - Poverty of speech [Recovered/Resolved]
